FAERS Safety Report 12954684 (Version 1)
Quarter: 2016Q4

REPORT INFORMATION
  Report Type: Spontaneous
  Country: US (occurrence: US)
  Receive Date: 20161117
  Receipt Date: 20161117
  Transmission Date: 20170207
  Serious: No
  Sender: FDA-Public Use
  Company Number: None

PATIENT
  Age: 23 Year
  Sex: Male
  Weight: 79.1 kg

DRUGS (1)
  1. SULFAMETHOXAZOLE/TRIMETHOPRIM [Suspect]
     Active Substance: SULFAMETHOXAZOLE\TRIMETHOPRIM
     Indication: BRONCHITIS
     Dosage: 800/160 MG BID PO
     Route: 048
     Dates: start: 20161029, end: 20161105

REACTIONS (2)
  - Hyponatraemia [None]
  - Hyperkalaemia [None]

NARRATIVE: CASE EVENT DATE: 20161105
